FAERS Safety Report 8446574-5 (Version None)
Quarter: 2012Q2

REPORT INFORMATION
  Report Type: 
  Country: None (occurrence: None)
  Receive Date: 20120619
  Receipt Date: 20120612
  Transmission Date: 20120825
  Serious: Yes (Hospitalization)
  Sender: FDA-Public Use
  Company Number: GB-AMGEN-GBRSP2012027803

PATIENT
  Age: 66 Year
  Sex: Female
  Weight: 108 kg

DRUGS (6)
  1. PARICALCITOL [Concomitant]
     Indication: RENAL FAILURE CHRONIC
     Dosage: 2 UNIT, 3 TIMES/WK
     Route: 048
  2. PREDNISONE [Concomitant]
     Dosage: 10 MG, UNK
     Route: 048
  3. CALCIUM [Concomitant]
  4. ALU-CAP                            /00057401/ [Concomitant]
     Dosage: UNK UNK, TID
     Route: 048
  5. PROLIA [Suspect]
     Indication: PRODUCT USED FOR UNKNOWN INDICATION
     Dosage: 60 MG, UNK
     Route: 058
     Dates: start: 20111026, end: 20111026
  6. VITAMIN D                          /00318501/ [Concomitant]

REACTIONS (2)
  - PARAESTHESIA [None]
  - HYPOCALCAEMIA [None]
